FAERS Safety Report 6477638-3 (Version None)
Quarter: 2009Q4

REPORT INFORMATION
  Report Type: 
  Country: None (occurrence: None)
  Receive Date: 20091204
  Receipt Date: 20091204
  Transmission Date: 20100525
  Serious: Yes (Other)
  Sender: FDA-Public Use
  Company Number: None

PATIENT
  Sex: Female
  Weight: 111.1313 kg

DRUGS (1)
  1. DICYCLOMINE [Suspect]
     Indication: GASTROINTESTINAL PAIN
     Dates: start: 20091002, end: 20091003

REACTIONS (4)
  - EUPHORIC MOOD [None]
  - HALLUCINATION [None]
  - PARAESTHESIA [None]
  - PERSONALITY CHANGE [None]
